FAERS Safety Report 4447290-7 (Version None)
Quarter: 2004Q3

REPORT INFORMATION
  Report Type: 
  Country: None (occurrence: None)
  Receive Date: 20040813
  Receipt Date: 20040715
  Transmission Date: 20050211
  Serious: No
  Sender: FDA-Public Use
  Company Number: S04-USA-04083-01

PATIENT
  Age: 83 Year
  Sex: Male

DRUGS (6)
  1. NAMENDA [Suspect]
     Indication: DEMENTIA ALZHEIMER'S TYPE
     Dosage: 5 MG QD PO
     Route: 048
     Dates: start: 20040708, end: 20040714
  2. NAMENDA [Suspect]
     Indication: DEMENTIA ALZHEIMER'S TYPE
     Dosage: 10 MG QD PO
     Route: 048
     Dates: start: 20040715
  3. ARICEPT [Concomitant]
  4. NEURONTIN [Concomitant]
  5. VITAMIN B-12 [Concomitant]
  6. LIPITOR [Concomitant]

REACTIONS (2)
  - CONFUSIONAL STATE [None]
  - POLLAKIURIA [None]
